FAERS Safety Report 10147525 (Version 1)
Quarter: 2014Q2

REPORT INFORMATION
  Report Type: Spontaneous
  Country: US (occurrence: US)
  Receive Date: 20140501
  Receipt Date: 20140501
  Transmission Date: 20141212
  Serious: No
  Sender: FDA-Public Use
  Company Number: US-GILEAD-2014-0101383

PATIENT
  Sex: Male

DRUGS (3)
  1. SOVALDI [Suspect]
     Indication: PRODUCT USED FOR UNKNOWN INDICATION
     Dosage: 2 DF, QD
     Route: 065
     Dates: start: 20140418, end: 20140430
  2. SOVALDI [Suspect]
     Dosage: 1 DF, QD
     Route: 065
  3. SIMEPREVIR [Concomitant]

REACTIONS (1)
  - Overdose [Recovered/Resolved]
